FAERS Safety Report 6962960-4 (Version None)
Quarter: 2010Q3

REPORT INFORMATION
  Report Type: 
  Country: None (occurrence: None)
  Receive Date: 20100902
  Receipt Date: 20100820
  Transmission Date: 20110219
  Serious: Yes (Death, Life-Threatening, Hospitalization)
  Sender: FDA-Public Use
  Company Number: JP-ROCHE-709715

PATIENT
  Sex: Female
  Weight: 32 kg

DRUGS (20)
  1. AVASTIN [Suspect]
     Indication: COLON CANCER RECURRENT
     Route: 041
     Dates: start: 20090610, end: 20090709
  2. AVASTIN [Suspect]
     Route: 041
     Dates: start: 20090806, end: 20091218
  3. FLUOROURACIL [Suspect]
     Indication: COLON CANCER RECURRENT
     Dosage: DOSSAGE IS UNCERTAIN
     Route: 040
     Dates: start: 20090610, end: 20090709
  4. FLUOROURACIL [Suspect]
     Dosage: ROUTE: INTRAVENOUS DRIP, DOSSAGE IS UNCERTAIN
     Route: 040
     Dates: start: 20090610, end: 20090701
  5. FLUOROURACIL [Suspect]
     Dosage: ROUTE: INTRAVENOUS BOLUS, DOSSAGE IS UNCERTAIN.
     Route: 040
     Dates: start: 20090806, end: 20090827
  6. FLUOROURACIL [Suspect]
     Dosage: ROUTE: INTRAVENOUS DRIP, DOSSAGE IS UNCERTAIN
     Route: 040
     Dates: start: 20090806, end: 20090801
  7. FLUOROURACIL [Suspect]
     Dosage: STOP DATE: 2009, ROUTE: INTRAVENOUS BOLUS, DOSSAGE IS UNCERTAIN.
     Route: 040
     Dates: start: 20090917
  8. FLUOROURACIL [Suspect]
     Dosage: STOP DATE: 2009, ROUTE: INTRAVENOUS DRIP, DOSSAGE IS UNCERTAIN
     Route: 040
     Dates: start: 20090917
  9. FLUOROURACIL [Suspect]
     Dosage: ROUTE: INTRAVENOUS BOLUS, DOSSAGE IS UNCERTAIN.
     Route: 040
     Dates: start: 20091014, end: 20091120
  10. FLUOROURACIL [Suspect]
     Dosage: ROUTE: INTRAVENOUS DRIP, DOSSAGE IS UNCERTAIN
     Route: 040
     Dates: start: 20091014, end: 20091101
  11. FLUOROURACIL [Suspect]
     Dosage: ROUTE: INTRAVENOUS DRIP
     Route: 040
     Dates: start: 20091218, end: 20091218
  12. CAMPTOSAR [Suspect]
     Indication: COLON CANCER RECURRENT
     Route: 041
     Dates: start: 20091218, end: 20091218
  13. IRINOTECAN HYDROCHLORIDE [Concomitant]
     Dosage: DOSSAGE IS UNCERTAIN.
     Route: 041
     Dates: start: 20090610, end: 20090709
  14. IRINOTECAN HYDROCHLORIDE [Concomitant]
     Dosage: STOP DATE: 2009, DOSSAGE IS UNCERTAIN.
     Route: 041
     Dates: start: 20090917
  15. LEUCOVORIN CALCIUM [Concomitant]
     Dosage: REPORTED AS: LEVOFOLINATE CALCIUM, DOSSAGE IS UNCERTAIN.
     Route: 041
     Dates: start: 20090806, end: 20090827
  16. LEUCOVORIN CALCIUM [Concomitant]
     Dosage: STOP DATE: 2009, DOSSAGE IS UNCERTAIN.
     Route: 041
     Dates: start: 20090917
  17. LEUCOVORIN CALCIUM [Concomitant]
     Dosage: DOSSAGE IS UNCERTAIN.
     Route: 041
     Dates: start: 20091014, end: 20091120
  18. LEUCOVORIN CALCIUM [Concomitant]
     Dosage: DOSSAGE IS UNCERTAIN.
     Route: 041
     Dates: start: 20090610, end: 20090709
  19. ELPLAT [Concomitant]
     Dosage: DOSSAGE IS UNCERTAIN.
     Route: 041
     Dates: start: 20090806, end: 20090827
  20. ELPLAT [Concomitant]
     Dosage: DOSSAGE IS UNCERTAIN.
     Route: 041
     Dates: start: 20091014, end: 20091120

REACTIONS (2)
  - DISEASE PROGRESSION [None]
  - LARGE INTESTINE PERFORATION [None]
